FAERS Safety Report 11742899 (Version 1)
Quarter: 2015Q4

REPORT INFORMATION
  Report Type: Report from Study
  Country: US (occurrence: US)
  Receive Date: 20151116
  Receipt Date: 20151116
  Transmission Date: 20160304
  Serious: Yes (Other)
  Sender: FDA-Public Use
  Company Number: US-JNJFOC-20151109910

PATIENT
  Sex: Female

DRUGS (1)
  1. REMICADE [Suspect]
     Active Substance: INFLIXIMAB
     Indication: PRODUCT USED FOR UNKNOWN INDICATION
     Dosage: STOPPED IN JUL YEAR NOT MENTIONED
     Route: 042

REACTIONS (3)
  - Brain neoplasm [Not Recovered/Not Resolved]
  - Adverse event [Unknown]
  - Cervix carcinoma recurrent [Not Recovered/Not Resolved]
